FAERS Safety Report 8876116 (Version 1)
Quarter: 2012Q4

REPORT INFORMATION
  Report Type: 
  Country: ES (occurrence: ES)
  Receive Date: 20121030
  Receipt Date: 20121030
  Transmission Date: 20130627
  Serious: Yes (Death, Other)
  Sender: FDA-Public Use
  Company Number: ES-WATSON-2012-18272

PATIENT
  Age: 66 Year
  Sex: Female

DRUGS (1)
  1. ALLOPURINOL (UNKNOWN) [Suspect]
     Indication: HYPERURICAEMIA
     Dosage: UNK
     Route: 065

REACTIONS (4)
  - Hypersensitivity [Recovered/Resolved]
  - Rash maculo-papular [Recovered/Resolved]
  - Rash pruritic [None]
  - Allergy test positive [Recovered/Resolved]
